FAERS Safety Report 10195839 (Version 2)
Quarter: 2014Q2

REPORT INFORMATION
  Report Type: Spontaneous
  Country: JP (occurrence: JP)
  Receive Date: 20140527
  Receipt Date: 20140613
  Transmission Date: 20141212
  Serious: Yes (Hospitalization)
  Sender: FDA-Public Use
  Company Number: JP-ROCHE-1406094

PATIENT
  Age: 38 Year
  Sex: Female

DRUGS (3)
  1. MIRCERA [Suspect]
     Indication: NEPHROGENIC ANAEMIA
     Route: 042
     Dates: start: 20140227
  2. NESP [Suspect]
     Indication: NEPHROGENIC ANAEMIA
     Route: 058
     Dates: end: 201306
  3. NESP [Suspect]
     Indication: NEPHROGENIC ANAEMIA
     Route: 042
     Dates: start: 20130704, end: 20140220

REACTIONS (1)
  - Anaemia [Not Recovered/Not Resolved]
